FAERS Safety Report 24981959 (Version 1)
Quarter: 2025Q1

REPORT INFORMATION
  Report Type: Spontaneous
  Country: DE (occurrence: DE)
  Receive Date: 20250218
  Receipt Date: 20250218
  Transmission Date: 20250408
  Serious: Yes (Other)
  Sender: ESTEVE
  Company Number: DE-Esteve Pharmaceuticals SA-2171302

PATIENT
  Age: 33 Month
  Sex: Female

DRUGS (6)
  1. LYSODREN [Suspect]
     Active Substance: MITOTANE
     Indication: Adrenocortical carcinoma
  2. VINCRISTINE SULFATE [Concomitant]
     Active Substance: VINCRISTINE SULFATE
  3. ETOPOSIDE [Concomitant]
     Active Substance: ETOPOSIDE
  4. CARBOPLATIN [Concomitant]
     Active Substance: CARBOPLATIN
  5. ADRIAMYCIN [Concomitant]
     Active Substance: DOXORUBICIN HYDROCHLORIDE
  6. IFOSFAMIDE [Concomitant]
     Active Substance: IFOSFAMIDE

REACTIONS (6)
  - Precocious puberty [Recovered/Resolved]
  - Off label use [Recovered/Resolved]
  - Central hypothyroidism [Unknown]
  - Adrenal insufficiency [Unknown]
  - Ataxia [Unknown]
  - Abdominal discomfort [Unknown]
